FAERS Safety Report 10919526 (Version 2)
Quarter: 2015Q2

REPORT INFORMATION
  Report Type: Report from Study
  Country: AT (occurrence: AT)
  Receive Date: 20150317
  Receipt Date: 20150406
  Transmission Date: 20150821
  Serious: Yes (Hospitalization)
  Sender: FDA-Public Use
  Company Number: AT-ROCHE-1542810

PATIENT
  Age: 9 Year
  Sex: Female
  Weight: 27.2 kg

DRUGS (19)
  1. AMLODIPIN [Concomitant]
     Active Substance: AMLODIPINE BESYLATE
     Indication: HYPERTENSION
     Route: 048
     Dates: start: 20150301
  2. EUTHYROX [Concomitant]
     Active Substance: LEVOTHYROXINE SODIUM
     Indication: HYPOTHYROIDISM
     Route: 048
     Dates: start: 20140805
  3. THALIDOMIDE [Suspect]
     Active Substance: THALIDOMIDE
     Indication: MEDULLOBLASTOMA
     Dosage: LAST ADMINISTRATION BEFORE THE SAE: 19/FEB/2015.
     Route: 048
     Dates: start: 20140811
  4. FENOFIBRATE. [Suspect]
     Active Substance: FENOFIBRATE
     Indication: MEDULLOBLASTOMA
     Dosage: LAST ADMINISTRATION BEFORE THE SAE: 19/FEB/2015.
     Route: 048
     Dates: start: 20140811
  5. AUGMENTIN [Concomitant]
     Active Substance: AMOXICILLIN\CLAVULANATE POTASSIUM
     Indication: INFECTION
     Route: 048
     Dates: start: 20150221
  6. SUPRADYN [Concomitant]
     Active Substance: ASCORBIC ACID\MINERALS\VITAMINS
     Route: 048
     Dates: start: 20150206
  7. MEROPENEM. [Concomitant]
     Active Substance: MEROPENEM
     Indication: INFECTION
     Route: 042
     Dates: start: 20150310
  8. CELECOXIB. [Suspect]
     Active Substance: CELECOXIB
     Indication: MEDULLOBLASTOMA
     Dosage: LAST ADMINISTRATION BEFORE THE SAE: 19/FEB/2015.
     Route: 048
     Dates: start: 20140811
  9. ETOPOSIDE. [Suspect]
     Active Substance: ETOPOSIDE
     Indication: MEDULLOBLASTOMA
     Dosage: LAST ADMINISTRATION BEFORE THE SAE: 19/FEB/2015.
     Route: 037
     Dates: start: 20140811
  10. BLOPRESS [Concomitant]
     Active Substance: CANDESARTAN CILEXETIL
     Indication: HYPERTENSION
     Route: 048
     Dates: start: 20150310
  11. DALACIN [Concomitant]
     Active Substance: CLINDAMYCIN\CLINDAMYCIN PHOSPHATE
     Indication: INFECTION
     Route: 042
     Dates: start: 20150308
  12. LIPOSOMAL CYTARABINE [Suspect]
     Active Substance: CYTARABINE
     Indication: MEDULLOBLASTOMA
     Dosage: LAST ADMINISTRATION BEFORE THE SAE: 19/FEB/2015.
     Route: 037
     Dates: start: 20140811
  13. HYDROCORTONE [Concomitant]
     Active Substance: HYDROCORTISONE
     Indication: HYPONATRAEMIA
     Route: 048
     Dates: start: 20150203
  14. LASIX [Concomitant]
     Active Substance: FUROSEMIDE
     Route: 042
     Dates: start: 20150310
  15. BEVACIZUMAB [Suspect]
     Active Substance: BEVACIZUMAB
     Indication: MEDULLOBLASTOMA
     Dosage: LAST ADMINISTRATION BEFORE THE SAE: 19/FEB/2015.
     Route: 042
     Dates: start: 20140811
  16. CYCLOPHOSPHAMIDE. [Suspect]
     Active Substance: CYCLOPHOSPHAMIDE
     Indication: MEDULLOBLASTOMA
     Dosage: LAST ADMINISTRATION BEFORE THE SAE: 19/FEB/2015.
     Route: 048
     Dates: start: 20150216
  17. ETOPOSIDE. [Suspect]
     Active Substance: ETOPOSIDE
     Indication: MEDULLOBLASTOMA
     Dosage: AS PER PROTOCOL
     Route: 048
     Dates: start: 20150324
  18. ASTONIN H [Concomitant]
     Indication: HYPONATRAEMIA
     Route: 048
     Dates: start: 20150129
  19. OLEOVIT D3 [Concomitant]
     Indication: VITAMIN D DEFICIENCY
     Dosage: DAILY DOSE 2000 IE
     Route: 048
     Dates: start: 20150129

REACTIONS (2)
  - Thrombophlebitis superficial [Unknown]
  - Pulmonary oedema [Recovered/Resolved]

NARRATIVE: CASE EVENT DATE: 20150219
